FAERS Safety Report 15306769 (Version 5)
Quarter: 2020Q3

REPORT INFORMATION
  Report Type: Report from Study
  Country: BR (occurrence: BR)
  Receive Date: 20180822
  Receipt Date: 20200819
  Transmission Date: 20201102
  Serious: Yes (Other)
  Sender: FDA-Public Use
  Company Number: PHHY2017BR051029

PATIENT
  Age: 59 Year
  Sex: Female
  Weight: 67 kg

DRUGS (9)
  1. ENALAPRIL [Suspect]
     Active Substance: ENALAPRIL
     Dosage: 2 DF, BID (2 TABLET OF 10 MG)
     Route: 048
     Dates: start: 1995
  2. ATENOLOL. [Suspect]
     Active Substance: ATENOLOL
     Indication: HYPERTENSION
     Dosage: 1 DF, QD (1 TABLET OF 25 MG)
     Route: 048
     Dates: start: 1995
  3. AMLODIPINE [Concomitant]
     Active Substance: AMLODIPINE BESYLATE
     Indication: HYPERTENSION
     Dosage: 2 DF, QD
     Route: 048
  4. ENALAPRIL [Suspect]
     Active Substance: ENALAPRIL
     Indication: HYPERTENSION
     Dosage: 10 MG, (2 TAB IN MORNING AND 2 AT NIGHT)
     Route: 048
     Dates: start: 1993
  5. CABERGOLINE. [Concomitant]
     Active Substance: CABERGOLINE
     Indication: ACROMEGALY
     Dosage: 0.5 MG, QD (MONDAY TO SATURDAY)
     Route: 048
     Dates: start: 2004
  6. DIPYRONE [Concomitant]
     Active Substance: DIPYRONE
     Indication: PRODUCT USED FOR UNKNOWN INDICATION
     Dosage: UNK
     Route: 065
  7. SANDOSTATIN LAR DEPOT [Suspect]
     Active Substance: OCTREOTIDE ACETATE
     Indication: ACROMEGALY
     Dosage: 20 MG, QMO
     Route: 030
     Dates: start: 20040818, end: 2006
  8. SANDOSTATIN LAR DEPOT [Suspect]
     Active Substance: OCTREOTIDE ACETATE
     Dosage: UNK
     Route: 065
     Dates: start: 20200809
  9. SANDOSTATIN LAR DEPOT [Suspect]
     Active Substance: OCTREOTIDE ACETATE
     Dosage: 30 MG, QMO
     Route: 030
     Dates: start: 2006

REACTIONS (25)
  - Malaise [Recovering/Resolving]
  - Pain [Recovering/Resolving]
  - Migraine [Recovered/Resolved]
  - Migraine [Recovered/Resolved]
  - Injection site pain [Unknown]
  - Muscle spasms [Not Recovered/Not Resolved]
  - Anxiety [Recovered/Resolved]
  - Intervertebral disc protrusion [Not Recovered/Not Resolved]
  - Intestinal polyp [Recovering/Resolving]
  - Back pain [Recovering/Resolving]
  - Pain in extremity [Recovering/Resolving]
  - Buttock injury [Unknown]
  - Blood pressure increased [Recovered/Resolved]
  - Muscular weakness [Not Recovered/Not Resolved]
  - Diabetes mellitus [Not Recovered/Not Resolved]
  - Haemorrhage [Recovered/Resolved]
  - Depressed mood [Recovering/Resolving]
  - Gait disturbance [Not Recovered/Not Resolved]
  - Haemorrhoids [Unknown]
  - Headache [Recovering/Resolving]
  - Fall [Recovered/Resolved]
  - Fatigue [Recovering/Resolving]
  - Vein rupture [Unknown]
  - Back disorder [Not Recovered/Not Resolved]
  - Sciatic nerve injury [Not Recovered/Not Resolved]

NARRATIVE: CASE EVENT DATE: 2004
